FAERS Safety Report 9960444 (Version 1)
Quarter: 2014Q1

REPORT INFORMATION
  Report Type: Report from Study
  Country: US (occurrence: US)
  Receive Date: 20140305
  Receipt Date: 20140305
  Transmission Date: 20141002
  Serious: No
  Sender: FDA-Public Use
  Company Number: US-ABBVIE-13P-163-1103774-00

PATIENT
  Age: 51 Year
  Sex: Male
  Weight: 87.62 kg

DRUGS (6)
  1. HUMIRA [Suspect]
     Indication: RHEUMATOID ARTHRITIS
     Route: 058
     Dates: start: 20120330
  2. METHOTREXATE [Suspect]
     Indication: RHEUMATOID ARTHRITIS
     Dosage: 8 PILLS
     Route: 048
     Dates: start: 2012, end: 201304
  3. METHOTREXATE [Suspect]
     Dates: start: 201304, end: 201305
  4. METHOTREXATE [Suspect]
     Dates: start: 20130602, end: 20130602
  5. OMEPRAZOLE [Concomitant]
     Indication: ABDOMINAL DISCOMFORT
  6. FOLIC ACID [Concomitant]
     Indication: VITAMIN SUPPLEMENTATION

REACTIONS (5)
  - Hepatic enzyme increased [Unknown]
  - Drug ineffective [Not Recovered/Not Resolved]
  - Joint destruction [Not Recovered/Not Resolved]
  - Rheumatoid nodule [Not Recovered/Not Resolved]
  - Dysphagia [Not Recovered/Not Resolved]
